FAERS Safety Report 9048234 (Version 2)
Quarter: 2013Q1

REPORT INFORMATION
  Report Type: Spontaneous
  Country: US (occurrence: US)
  Receive Date: 20130204
  Receipt Date: 20130305
  Transmission Date: 20140127
  Serious: No
  Sender: FDA-Public Use
  Company Number: US-AMGEN-USASP2013001776

PATIENT
  Age: 66 Year
  Sex: Female
  Weight: 61.68 kg

DRUGS (3)
  1. ENBREL [Suspect]
     Indication: RHEUMATOID ARTHRITIS
     Dosage: 50 MG, QWK
     Route: 058
     Dates: start: 20130104, end: 20130111
  2. FOLIC ACID [Concomitant]
     Dosage: UNK
  3. METHOTREXATE [Concomitant]
     Dosage: UNK

REACTIONS (8)
  - Pain in extremity [Not Recovered/Not Resolved]
  - Hypoaesthesia [Recovered/Resolved]
  - Arthralgia [Not Recovered/Not Resolved]
  - Erythema [Not Recovered/Not Resolved]
  - Peripheral vascular disorder [Not Recovered/Not Resolved]
  - Pruritus [Recovered/Resolved]
  - Swelling face [Unknown]
  - Injection site discomfort [Recovered/Resolved]
